FAERS Safety Report 9423772 (Version 1)
Quarter: 2013Q3

REPORT INFORMATION
  Report Type: Spontaneous
  Country: US (occurrence: US)
  Receive Date: 20130728
  Receipt Date: 20130728
  Transmission Date: 20140515
  Serious: Yes (Life-Threatening, Other)
  Sender: FDA-Public Use
  Company Number: US-009507513-1307USA013286

PATIENT
  Sex: Female
  Weight: 107.48 kg

DRUGS (1)
  1. NUVARING [Suspect]
     Indication: CONTRACEPTION
     Dosage: 0.120 MG/0.015 MG DAILY
     Route: 067
     Dates: start: 20130305, end: 20130711

REACTIONS (1)
  - Pulmonary embolism [Recovering/Resolving]
